FAERS Safety Report 9357436 (Version 3)
Quarter: 2013Q4

REPORT INFORMATION
  Report Type: Report from Study
  Country: US (occurrence: US)
  Receive Date: 20130620
  Receipt Date: 20131211
  Transmission Date: 20140711
  Serious: No
  Sender: FDA-Public Use
  Company Number: US-ROCHE-GNE319199

PATIENT
  Sex: Female
  Weight: 57.2 kg

DRUGS (29)
  1. OMALIZUMAB [Suspect]
     Indication: ASTHMA
     Dosage: 375 MG, Q3W, MOST RECENT DOSE ON: 06/DEC/2012
     Route: 058
     Dates: end: 20110511
  2. OMALIZUMAB [Suspect]
     Dosage: 375 MG, Q3W
     Route: 058
     Dates: start: 20110713
  3. OMALIZUMAB [Suspect]
     Dosage: 375 MG, Q3W
     Route: 058
     Dates: start: 20110818
  4. OMALIZUMAB [Suspect]
     Dosage: 375 MG, Q3W
     Route: 058
     Dates: start: 20110915
  5. OMALIZUMAB [Suspect]
     Route: 058
     Dates: start: 20120621
  6. OMALIZUMAB [Suspect]
     Route: 058
     Dates: start: 20120714
  7. OMALIZUMAB [Suspect]
     Route: 058
     Dates: start: 20120809
  8. OMALIZUMAB [Suspect]
     Route: 058
     Dates: start: 20120830
  9. OMALIZUMAB [Suspect]
     Route: 058
     Dates: start: 20120920
  10. OMALIZUMAB [Suspect]
     Route: 058
     Dates: start: 20121011
  11. OMALIZUMAB [Suspect]
     Route: 058
     Dates: start: 20121101
  12. OMALIZUMAB [Suspect]
     Route: 058
     Dates: start: 20121205
  13. OMALIZUMAB [Suspect]
     Dosage: MOST RECENT DOSE ON 10/JUN/2013.
     Route: 058
     Dates: start: 20130103, end: 20130801
  14. OMALIZUMAB [Suspect]
     Route: 058
     Dates: start: 200809
  15. BIOTIN [Concomitant]
  16. PROAIR (UNITED STATES) [Concomitant]
     Indication: ASTHMA
     Dosage: UNK
     Route: 065
  17. FLUTICASONE PROPIONATE [Concomitant]
     Indication: HYPERSENSITIVITY
     Dosage: UNK
     Route: 065
  18. ADVAIR [Concomitant]
     Indication: ASTHMA
     Dosage: UNK
     Route: 065
  19. PULMICORT [Concomitant]
     Indication: ASTHMA
     Dosage: UNK
     Route: 065
  20. FEXOFENADINE [Concomitant]
     Indication: HYPERSENSITIVITY
     Route: 048
  21. CETIRIZINE [Concomitant]
     Indication: HYPERSENSITIVITY
  22. TYLENOL [Concomitant]
     Indication: PAIN
     Dosage: UNK
     Route: 065
  23. MOTRIN [Concomitant]
     Indication: PAIN
     Dosage: UNK
     Route: 065
  24. NASONEX [Concomitant]
     Indication: HYPERSENSITIVITY
     Dosage: UNK
     Route: 065
  25. SINGULAIR [Concomitant]
     Indication: ASTHMA
     Dosage: UNK
     Route: 048
  26. PREDNISONE [Concomitant]
     Indication: ECZEMA
  27. DEPO-PROVERA [Concomitant]
     Indication: CONTRACEPTION
  28. MIRENA [Concomitant]
     Indication: CONTRACEPTION
     Route: 048
  29. MORPHINE [Concomitant]
     Dosage: STOP DATE MAY 2013
     Route: 042
     Dates: start: 20130512

REACTIONS (1)
  - Exposure during pregnancy [Unknown]
